FAERS Safety Report 10350470 (Version 2)
Quarter: 2014Q3

REPORT INFORMATION
  Report Type: Spontaneous
  Country: US (occurrence: US)
  Receive Date: 20140730
  Receipt Date: 20140730
  Transmission Date: 20150326
  Serious: No
  Sender: FDA-Public Use
  Company Number: US-ABBVIE-12P-163-0920159-00

PATIENT
  Sex: Male
  Weight: 74.91 kg

DRUGS (3)
  1. ECOTRIN [Concomitant]
     Active Substance: ASPIRIN
     Indication: PRODUCT USED FOR UNKNOWN INDICATION
  2. NIASPAN [Suspect]
     Active Substance: NIACIN
     Indication: BLOOD CHOLESTEROL
     Dosage: IN AM WITH CHEERIOS
     Dates: start: 2011
  3. NIASPAN [Suspect]
     Active Substance: NIACIN
     Dosage: IN AM WITH CHEERIOS
     Dates: start: 2010, end: 2010

REACTIONS (3)
  - Medication residue present [Not Recovered/Not Resolved]
  - Flushing [Not Recovered/Not Resolved]
  - Erythema [Not Recovered/Not Resolved]
